FAERS Safety Report 12288336 (Version 2)
Quarter: 2017Q4

REPORT INFORMATION
  Report Type: Spontaneous
  Country: FR (occurrence: FR)
  Receive Date: 20160420
  Receipt Date: 20171027
  Transmission Date: 20180320
  Serious: Yes (Death, Life-Threatening, Hospitalization)
  Sender: FDA-Public Use
  Company Number: FR-ASTRAZENECA-2016SE41921

PATIENT
  Age: 21797 Day
  Sex: Male
  Weight: 79 kg

DRUGS (26)
  1. DOBUTAMINE [Concomitant]
     Active Substance: DOBUTAMINE\DOBUTAMINE HYDROCHLORIDE
     Dates: start: 20160125
  2. LIDOCAINE. [Concomitant]
     Active Substance: LIDOCAINE
     Dosage: 250.0MG ONCE/SINGLE ADMINISTRATION
     Dates: start: 201601
  3. ESOMEPRAZOLE [Concomitant]
     Active Substance: ESOMEPRAZOLE
     Indication: OESOPHAGEAL ULCER
     Route: 042
     Dates: start: 20160201, end: 20160206
  4. PROTAMINE [Concomitant]
     Active Substance: PROTAMINE
     Dosage: 100.0MG ONCE/SINGLE ADMINISTRATION
  5. TRANEXAMIC ACID. [Concomitant]
     Active Substance: TRANEXAMIC ACID
     Indication: MAINTENANCE OF ANAESTHESIA
     Dosage: 2.0G ONCE/SINGLE ADMINISTRATION
  6. TAHOR [Concomitant]
     Active Substance: ATORVASTATIN CALCIUM
     Indication: MYOCARDIAL INFARCTION
     Route: 048
     Dates: start: 20160126, end: 20160206
  7. ADRENALINE [Concomitant]
     Active Substance: EPINEPHRINE
     Route: 042
     Dates: start: 20160127
  8. TRANEXAMIC ACID. [Concomitant]
     Active Substance: TRANEXAMIC ACID
     Indication: INDUCTION OF ANAESTHESIA
     Dosage: 1 G/H DURING SURGERY ONCE/SINGLE ADMINISTRATION
  9. BRILIQUE [Suspect]
     Active Substance: TICAGRELOR
     Indication: ACUTE CORONARY SYNDROME
     Dosage: LOADING DOSE 180 MG
     Route: 048
  10. PANTOPRAZOLE [Concomitant]
     Active Substance: PANTOPRAZOLE
     Indication: OESOPHAGEAL ULCER
     Dates: start: 201601, end: 20160131
  11. HEPARIN SODIUM. [Concomitant]
     Active Substance: HEPARIN SODIUM
     Indication: CARDIAC ASSISTANCE DEVICE USER
     Dosage: LOADING  DOSE 5,000 U
     Route: 042
     Dates: start: 20160127, end: 20160205
  12. TRANEXAMIC ACID. [Concomitant]
     Active Substance: TRANEXAMIC ACID
     Indication: INDUCTION OF ANAESTHESIA
     Dosage: 2.0G ONCE/SINGLE ADMINISTRATION
  13. TRANEXAMIC ACID. [Concomitant]
     Active Substance: TRANEXAMIC ACID
     Indication: MAINTENANCE OF ANAESTHESIA
     Dosage: 1 G/H DURING SURGERY ONCE/SINGLE ADMINISTRATION
  14. AGRASTAT [Concomitant]
     Active Substance: TIROFIBAN HYDROCHLORIDE
     Dates: start: 20160125
  15. XYLOCAINE [Concomitant]
     Active Substance: LIDOCAINE HYDROCHLORIDE
  16. VOLUVEN [Concomitant]
     Active Substance: HYDROXYETHYL STARCH 130/0.4
     Route: 041
     Dates: start: 201601
  17. NORADRENALINE MYLAN [Concomitant]
     Active Substance: NOREPINEPHRINE\NOREPINEPHRINE BITARTRATE
     Indication: BLOOD PRESSURE ABNORMAL
     Dates: start: 201601, end: 20160206
  18. PROPOFOL. [Concomitant]
     Active Substance: PROPOFOL
     Indication: SEDATIVE THERAPY
     Dosage: 20 MG/ML, INTRAVENOUS 1 DF PER DAY
     Route: 042
     Dates: start: 20160126, end: 20160206
  19. REMIFENTANIL [Concomitant]
     Active Substance: REMIFENTANIL
     Indication: SEDATIVE THERAPY
     Dosage: 100 MCG/ML
     Route: 042
     Dates: start: 20160126, end: 20160206
  20. AMIODARONE [Concomitant]
     Active Substance: AMIODARONE
  21. HEPARIN [Concomitant]
     Active Substance: HEPARIN SODIUM
     Indication: CARDIAC OPERATION
     Dosage: 16,000 U
     Route: 042
     Dates: start: 20160205, end: 20160206
  22. KARDEGIC [Concomitant]
     Active Substance: ASPIRIN DL-LYSINE
     Indication: ACUTE CORONARY SYNDROME
     Dosage: LOADING  DOSE OF 250 MG
  23. BRILIQUE [Suspect]
     Active Substance: TICAGRELOR
     Indication: ACUTE CORONARY SYNDROME
     Route: 048
     Dates: start: 20160126, end: 20160206
  24. KARDEGIC [Concomitant]
     Active Substance: ASPIRIN DL-LYSINE
     Indication: ACUTE CORONARY SYNDROME
     Route: 048
     Dates: start: 20160126, end: 20160206
  25. CORDARONE [Concomitant]
     Active Substance: AMIODARONE HYDROCHLORIDE
     Indication: VENTRICULAR TACHYCARDIA
     Dosage: 150 MG/3 ML
     Route: 042
     Dates: start: 201601, end: 20160206
  26. COROTROPE [Concomitant]
     Active Substance: MILRINONE
     Indication: CARDIAC FAILURE CONGESTIVE
     Dosage: 10 MG/50 ML
     Route: 042
     Dates: start: 20160127

REACTIONS (8)
  - Refractoriness to platelet transfusion [Fatal]
  - Shock haemorrhagic [Fatal]
  - Haemorrhage intracranial [Recovered/Resolved]
  - Cardiac procedure complication [Fatal]
  - Procedural haemorrhage [Fatal]
  - Post procedural haemorrhage [Fatal]
  - Coagulopathy [Fatal]
  - Gastric ulcer haemorrhage [Unknown]

NARRATIVE: CASE EVENT DATE: 20160205
